FAERS Safety Report 25651997 (Version 1)
Quarter: 2025Q3

REPORT INFORMATION
  Report Type: Report from Study
  Country: US (occurrence: US)
  Receive Date: 20250806
  Receipt Date: 20250806
  Transmission Date: 20251021
  Serious: No
  Sender: SUNOVION
  Company Number: US-SUMITOMO PHARMA SWITZERLAND GMBH-2025SPA006794

PATIENT
  Age: 64 Year
  Sex: Male
  Weight: 84.354 kg

DRUGS (9)
  1. ORGOVYX [Suspect]
     Active Substance: RELUGOLIX
     Indication: Prostate cancer
     Dosage: 360 MG, SINGLE
     Route: 048
     Dates: start: 20250508, end: 20250508
  2. ORGOVYX [Suspect]
     Active Substance: RELUGOLIX
     Dosage: 120 MG, QD
     Route: 048
     Dates: start: 20250509
  3. VITAMIN D3 [Concomitant]
     Active Substance: CHOLECALCIFEROL
     Route: 048
  4. MAGNESIUM OXIDE [Concomitant]
     Active Substance: MAGNESIUM OXIDE
     Route: 048
  5. FISH OIL\OMEGA-3 FATTY ACIDS [Concomitant]
     Active Substance: FISH OIL\OMEGA-3 FATTY ACIDS
     Route: 048
  6. VITAMIN E [Concomitant]
     Active Substance: .ALPHA.-TOCOPHEROL
     Route: 048
  7. VITAMIN K [Concomitant]
     Active Substance: PHYTONADIONE
     Route: 048
  8. ZINC [Concomitant]
     Active Substance: ZINC
     Route: 048
  9. VITAMIN C [Concomitant]
     Active Substance: ASCORBIC ACID

REACTIONS (9)
  - Emotional distress [Recovering/Resolving]
  - Chills [Recovered/Resolved]
  - Sexual dysfunction [Recovering/Resolving]
  - Mental fatigue [Recovering/Resolving]
  - Brain fog [Recovering/Resolving]
  - Mood swings [Not Recovered/Not Resolved]
  - Arthralgia [Recovering/Resolving]
  - Fatigue [Not Recovered/Not Resolved]
  - Hot flush [Recovering/Resolving]
